FAERS Safety Report 21395438 (Version 2)
Quarter: 2022Q4

REPORT INFORMATION
  Report Type: Spontaneous
  Country: US (occurrence: US)
  Receive Date: 20220930
  Receipt Date: 20221102
  Transmission Date: 20230112
  Serious: No
  Sender: FDA-Public Use
  Company Number: US-BRISTOL-MYERS SQUIBB COMPANY-2022-114216

PATIENT
  Age: 58 Year
  Sex: Female

DRUGS (2)
  1. REVLIMID [Suspect]
     Active Substance: LENALIDOMIDE
     Indication: Plasma cell myeloma
     Dosage: FREQ: DAILY 21 D ON 7 D OFF.
     Route: 048
     Dates: start: 20220824
  2. REVLIMID [Suspect]
     Active Substance: LENALIDOMIDE
     Indication: Plasma cell myeloma
     Dosage: FREQ: DAILY 21 D ON 7 D OFF.
     Route: 048
     Dates: start: 20221007

REACTIONS (5)
  - Dry mouth [Unknown]
  - Dizziness [Unknown]
  - Chapped lips [Unknown]
  - Fatigue [Unknown]
  - Asthenia [Unknown]
